FAERS Safety Report 10257952 (Version 1)
Quarter: 2014Q2

REPORT INFORMATION
  Report Type: Spontaneous
  Country: US (occurrence: US)
  Receive Date: 20140625
  Receipt Date: 20140625
  Transmission Date: 20141212
  Serious: Yes (Hospitalization)
  Sender: FDA-Public Use
  Company Number: US-PFIZER INC-2014170745

PATIENT
  Age: 69 Year
  Sex: Female
  Weight: 74.83 kg

DRUGS (2)
  1. AROMASIN [Suspect]
     Indication: POSTOPERATIVE CARE
     Dosage: 25 MG, 1X/DAY
     Dates: start: 201203
  2. LISINOPRIL [Concomitant]
     Indication: HYPERTENSION
     Dosage: 10 MG, 1X/DAY

REACTIONS (3)
  - Urinary tract infection [Unknown]
  - Gastrointestinal disorder [Unknown]
  - Heart rate decreased [Unknown]
